FAERS Safety Report 4614067-9 (Version None)
Quarter: 2005Q1

REPORT INFORMATION
  Report Type: 
  Country: None (occurrence: None)
  Receive Date: 20050316
  Receipt Date: 20050307
  Transmission Date: 20050727
  Serious: Yes (Death, Life-Threatening, Other)
  Sender: FDA-Public Use
  Company Number: 2005-03-0365

PATIENT
  Age: 53 Year
  Sex: Male

DRUGS (2)
  1. PEG-INTERFERON ALFA-2B INJECTABLE [Suspect]
     Indication: HEPATITIS C
     Dosage: SUBCUTANEOUS
     Route: 058
     Dates: start: 20040101, end: 20050101
  2. RIBAVIRIN [Suspect]
     Indication: HEPATITIS C
     Dosage: 200 MG ORAL
     Route: 048
     Dates: start: 20040101, end: 20050101

REACTIONS (8)
  - ALCOHOL USE [None]
  - DEPRESSION [None]
  - FALL [None]
  - HAEMORRHAGE [None]
  - OPEN WOUND [None]
  - PLATELET COUNT DECREASED [None]
  - SKIN INJURY [None]
  - TREATMENT NONCOMPLIANCE [None]
